FAERS Safety Report 21570775 (Version 2)
Quarter: 2022Q4

REPORT INFORMATION
  Report Type: Spontaneous
  Country: US (occurrence: US)
  Receive Date: 20221109
  Receipt Date: 20221215
  Transmission Date: 20230113
  Serious: Yes (Other)
  Sender: FDA-Public Use
  Company Number: US-TAKEDA-2022TUS081708

PATIENT
  Age: 65 Year
  Sex: Male
  Weight: 86.63 kg

DRUGS (1)
  1. ENTYVIO [Suspect]
     Active Substance: VEDOLIZUMAB
     Indication: Crohn^s disease
     Dosage: 300 MILLIGRAM
     Route: 042
     Dates: start: 202104, end: 202211

REACTIONS (1)
  - JC virus infection [Recovered/Resolved]

NARRATIVE: CASE EVENT DATE: 20221001
